FAERS Safety Report 19742363 (Version 1)
Quarter: 2021Q3

REPORT INFORMATION
  Report Type: Spontaneous
  Country: IT (occurrence: IT)
  Receive Date: 20210824
  Receipt Date: 20210824
  Transmission Date: 20211014
  Serious: Yes (Other)
  Sender: FDA-Public Use
  Company Number: IT-MYLANLABS-2021M1054251

PATIENT
  Age: 45 Year
  Sex: Male

DRUGS (17)
  1. ABACAVIR. [Suspect]
     Active Substance: ABACAVIR
     Dosage: UNK
  2. LAMIVUDINE. [Suspect]
     Active Substance: LAMIVUDINE
     Dosage: UNK
  3. FOSAMPRENAVIR [Suspect]
     Active Substance: FOSAMPRENAVIR
     Dosage: UNK
  4. RITONAVIR. [Suspect]
     Active Substance: RITONAVIR
     Indication: HIV INFECTION
     Dosage: UNK
  5. RITONAVIR. [Suspect]
     Active Substance: RITONAVIR
     Dosage: UNK
  6. ZIDOVUDINE. [Concomitant]
     Active Substance: ZIDOVUDINE
     Indication: HIV INFECTION
     Dosage: UNK
  7. RITONAVIR. [Suspect]
     Active Substance: RITONAVIR
     Dosage: UNK
  8. ABACAVIR. [Suspect]
     Active Substance: ABACAVIR
     Indication: HIV INFECTION
     Dosage: UNK
  9. RITONAVIR. [Suspect]
     Active Substance: RITONAVIR
     Dosage: UNK
  10. LAMIVUDINE. [Suspect]
     Active Substance: LAMIVUDINE
     Indication: HIV INFECTION
     Dosage: UNK
  11. LAMIVUDINE. [Suspect]
     Active Substance: LAMIVUDINE
     Dosage: UNK
  12. FOSAMPRENAVIR [Suspect]
     Active Substance: FOSAMPRENAVIR
     Indication: HIV INFECTION
     Dosage: UNK
  13. ABACAVIR. [Suspect]
     Active Substance: ABACAVIR
     Dosage: UNK
  14. ABACAVIR. [Suspect]
     Active Substance: ABACAVIR
     Dosage: UNK
  15. LAMIVUDINE. [Suspect]
     Active Substance: LAMIVUDINE
     Dosage: UNK
  16. FOSAMPRENAVIR [Suspect]
     Active Substance: FOSAMPRENAVIR
     Dosage: UNK
  17. FOSAMPRENAVIR [Suspect]
     Active Substance: FOSAMPRENAVIR
     Dosage: UNK

REACTIONS (9)
  - CSF HIV escape syndrome [Recovered/Resolved]
  - Cognitive disorder [Recovered/Resolved]
  - White matter lesion [Recovered/Resolved]
  - Brain oedema [Recovered/Resolved]
  - Virologic failure [Recovered/Resolved]
  - Cerebral disorder [Recovered/Resolved]
  - Peripheral venous disease [Recovered/Resolved]
  - Disease recurrence [Recovered/Resolved]
  - Nervous system disorder [Recovered/Resolved]
